FAERS Safety Report 16411306 (Version 1)
Quarter: 2019Q2

REPORT INFORMATION
  Report Type: Spontaneous
  Country: JP (occurrence: JP)
  Receive Date: 20190610
  Receipt Date: 20190610
  Transmission Date: 20190711
  Serious: Yes (Other)
  Sender: FDA-Public Use
  Company Number: JP-PFIZER INC-2019237932

PATIENT

DRUGS (3)
  1. NORVASC [Suspect]
     Active Substance: AMLODIPINE BESYLATE
     Indication: BLOOD PRESSURE ABNORMAL
     Dosage: UNK
     Route: 048
  2. ALOSITOL [Suspect]
     Active Substance: ALLOPURINOL
     Indication: BLOOD PRESSURE ABNORMAL
     Dosage: UNK
     Route: 048
  3. OLMETEC [Suspect]
     Active Substance: OLMESARTAN MEDOXOMIL
     Indication: BLOOD PRESSURE ABNORMAL
     Dosage: UNK
     Route: 048

REACTIONS (1)
  - Rhabdomyolysis [Unknown]
